FAERS Safety Report 26032072 (Version 1)
Quarter: 2025Q4

REPORT INFORMATION
  Report Type: Spontaneous
  Country: EU (occurrence: EU)
  Receive Date: 20251112
  Receipt Date: 20251112
  Transmission Date: 20260117
  Serious: Yes (Hospitalization)
  Sender: ABBVIE
  Company Number: EU-ABBVIE-6542440

PATIENT
  Age: 59 Year
  Sex: Female
  Weight: 37 kg

DRUGS (1)
  1. FOSCARBIDOPA\FOSLEVODOPA [Suspect]
     Active Substance: FOSCARBIDOPA\FOSLEVODOPA
     Indication: Parkinson^s disease
     Dosage: 0.36 ML/H FROM 5:30 AM TO MIDNIGHT AND 0.24 ML/H FROM MIDNIGHT TO 5:30 AM
     Route: 058
     Dates: start: 20250514

REACTIONS (7)
  - Acute polyneuropathy [Recovered/Resolved with Sequelae]
  - Neuralgia [Recovered/Resolved with Sequelae]
  - Quadriparesis [Recovered/Resolved with Sequelae]
  - Gait inability [Recovered/Resolved with Sequelae]
  - Areflexia [Recovered/Resolved with Sequelae]
  - Electromyogram abnormal [Unknown]
  - Electromyogram abnormal [Unknown]

NARRATIVE: CASE EVENT DATE: 20250101
